FAERS Safety Report 4916501-3 (Version None)
Quarter: 2006Q1

REPORT INFORMATION
  Report Type: 
  Country: None (occurrence: None)
  Receive Date: 20060220
  Receipt Date: 20060209
  Transmission Date: 20060701
  Serious: Yes (Hospitalization)
  Sender: FDA-Public Use
  Company Number: PHEH2006US01919

PATIENT
  Age: 67 Year
  Sex: Female

DRUGS (1)
  1. ZELNORM [Suspect]
     Indication: CONSTIPATION
     Route: 048
     Dates: start: 20050501, end: 20050501

REACTIONS (5)
  - CHOLECYSTECTOMY [None]
  - DYSPNOEA [None]
  - GALLBLADDER DISORDER [None]
  - GASTRIC HAEMORRHAGE [None]
  - STRESS [None]
